FAERS Safety Report 6250694-3 (Version None)
Quarter: 2009Q2

REPORT INFORMATION
  Report Type: 
  Country: None (occurrence: None)
  Receive Date: 20090630
  Receipt Date: 20090622
  Transmission Date: 20091009
  Serious: Yes (Hospitalization)
  Sender: FDA-Public Use
  Company Number: US-JNJFOC-20090608655

PATIENT
  Sex: Male

DRUGS (1)
  1. REMICADE [Suspect]
     Indication: DRUG USE FOR UNKNOWN INDICATION
     Dosage: A TOTAL OF ONE INFUSION ADMINISTERED
     Route: 042

REACTIONS (3)
  - ASTHENIA [None]
  - DISORIENTATION [None]
  - HYPOAESTHESIA [None]
